FAERS Safety Report 8322474-6 (Version None)
Quarter: 2012Q2

REPORT INFORMATION
  Report Type: 
  Country: None (occurrence: None)
  Receive Date: 20120430
  Receipt Date: 20100119
  Transmission Date: 20120825
  Serious: No
  Sender: FDA-Public Use
  Company Number: US-TEVA-2010000254

PATIENT
  Sex: Male
  Weight: 78.996 kg

DRUGS (9)
  1. CLONIDINE [Concomitant]
     Dosage: .6 MILLIGRAM;
     Route: 048
  2. KLOR-CON [Concomitant]
     Dosage: 10 MILLIEQUIVALENTS;
     Route: 048
  3. ASPIRIN [Concomitant]
     Route: 048
  4. NUVIGIL [Suspect]
     Indication: SLEEP APNOEA SYNDROME
     Dosage: 150 MILLIGRAM;
     Route: 048
     Dates: start: 20091201, end: 20100117
  5. DIOVAN [Concomitant]
     Dosage: 150 MILLIGRAM;
  6. WARFARIN SODIUM [Concomitant]
     Dosage: 6 MILLIGRAM;
     Route: 048
  7. FUROSEMIDE [Concomitant]
     Dosage: 20 MILLIGRAM;
     Route: 048
  8. METOPROLOL TARTRATE [Concomitant]
     Dosage: 50 MILLIGRAM;
     Route: 048
  9. SANCTURA [Concomitant]
     Dosage: 40 MILLIGRAM;
     Route: 048

REACTIONS (1)
  - NAUSEA [None]
